FAERS Safety Report 5035012-0 (Version None)
Quarter: 2006Q2

REPORT INFORMATION
  Report Type: 
  Country: None (occurrence: None)
  Receive Date: 20060518
  Receipt Date: 20050916
  Transmission Date: 20061013
  Serious: Yes (Other)
  Sender: FDA-Public Use
  Company Number: 2005124400

PATIENT
  Age: 15 Year
  Sex: Female
  Weight: 77.1115 kg

DRUGS (4)
  1. DEPO-PROVERA [Suspect]
     Indication: CONTRACEPTION
     Dosage: SEE IMAGE
     Dates: start: 20040303, end: 20040303
  2. DEPO-PROVERA [Suspect]
     Indication: CONTRACEPTION
     Dosage: SEE IMAGE
     Dates: start: 20050101, end: 20050101
  3. CLARINEX [Concomitant]
  4. SINGULAIR ^DIECKMANN^ (MONTELUKAST SODIUM) [Concomitant]

REACTIONS (9)
  - AMENORRHOEA [None]
  - ARTHRALGIA [None]
  - CONTUSION [None]
  - FATIGUE [None]
  - GASTRIC DISORDER [None]
  - HEADACHE [None]
  - SKIN DISCOLOURATION [None]
  - SLEEP DISORDER [None]
  - WEIGHT INCREASED [None]
